FAERS Safety Report 19427375 (Version 13)
Quarter: 2022Q4

REPORT INFORMATION
  Report Type: Report from Study
  Country: CN (occurrence: None)
  Receive Date: 20210616
  Receipt Date: 20221214
  Transmission Date: 20230112
  Serious: Yes (Death, Hospitalization)
  Sender: FDA-Public Use
  Company Number: CN-ROCHE-2848450

PATIENT
  Age: 57 Year
  Sex: Male
  Weight: 75 kg

DRUGS (27)
  1. ATEZOLIZUMAB [Suspect]
     Active Substance: ATEZOLIZUMAB
     Indication: Small cell lung cancer extensive stage
     Dosage: DAY 1 OF EACH 21-DAY CYCLE, LIQUID?MOST RECENT DOSE OF ATEZOLIZUMAB PRIOR TO SAE: 21/MAY/2021, 16/JU
     Route: 041
     Dates: start: 20210423
  2. CISPLATIN [Suspect]
     Active Substance: CISPLATIN
     Indication: Small cell lung cancer extensive stage
     Dosage: 75 MG/M2 FROM DAY 1 OF EACH 21-DAY CYCLE, LIQUID?MOST RECENT DOSE OF CISPLATIN (40 MG) PRIOR TO SAE:
     Route: 042
     Dates: start: 20210423
  3. CISPLATIN [Suspect]
     Active Substance: CISPLATIN
     Dosage: 40 MG DAY1-2, 50 MG DAY3
     Route: 042
     Dates: start: 20210519
  4. CISPLATIN [Suspect]
     Active Substance: CISPLATIN
     Dosage: MOST RECENT DOSE OF CISPLATIN PRIOR TO SAE: 21/MAY/2021, 16/JUN/2021, 17/JUL/2021.
     Route: 042
     Dates: start: 20210423
  5. ETOPOSIDE [Suspect]
     Active Substance: ETOPOSIDE
     Indication: Small cell lung cancer extensive stage
     Dosage: 100 MG/M2 FROM DAY 1 TO DAY 3 OF EACH 21-DAY CYCLE, LIQUID,?ON 19/MAY/2021, SECOND CYCLE STARTED ?MO
     Route: 042
     Dates: start: 20210423
  6. ETOPOSIDE [Suspect]
     Active Substance: ETOPOSIDE
     Dosage: FROM DAY 1 TO DAY 3, EVERY 3 WEEKS (21 DAYS CYCLE)
     Route: 042
     Dates: start: 20210519
  7. MIGLITOL [Concomitant]
     Active Substance: MIGLITOL
     Route: 048
     Dates: start: 202103
  8. METFORMIN HYDROCHLORIDE [Concomitant]
     Active Substance: METFORMIN HYDROCHLORIDE
     Dates: start: 2019
  9. SODIUM BICARBONATE [Concomitant]
     Active Substance: SODIUM BICARBONATE
     Dates: start: 20210425, end: 20210703
  10. LICORICE [Concomitant]
     Active Substance: LICORICE
     Route: 048
     Dates: start: 20210524, end: 20210701
  11. COBALT [Concomitant]
     Active Substance: COBALT
     Dates: start: 20210609, end: 20210619
  12. CIMETIDINE [Concomitant]
     Active Substance: CIMETIDINE
     Dates: start: 20210616, end: 20210619
  13. METOCLOPRAMIDE HYDROCHLORIDE [Concomitant]
     Active Substance: METOCLOPRAMIDE HYDROCHLORIDE
     Dates: start: 20210616, end: 20210619
  14. TROPISETRON HYDROCHLORIDE [Concomitant]
     Active Substance: TROPISETRON HYDROCHLORIDE
     Dates: start: 20190616, end: 20210619
  15. SODIUM CHLORIDE [Concomitant]
     Active Substance: SODIUM CHLORIDE
     Dates: start: 20210616, end: 20210616
  16. SODIUM CHLORIDE [Concomitant]
     Active Substance: SODIUM CHLORIDE
     Dates: start: 20210617, end: 20210619
  17. AMLODIPINE BESYLATE [Concomitant]
     Active Substance: AMLODIPINE BESYLATE
     Dates: start: 20210618, end: 20210622
  18. ZOLEDRONIC ACID [Concomitant]
     Active Substance: ZOLEDRONIC ACID
     Dates: start: 20210619, end: 20210619
  19. MONTMORILLONITE [Concomitant]
     Active Substance: MONTMORILLONITE
     Dates: start: 20210618, end: 20210618
  20. ATORVASTATIN CALCIUM [Concomitant]
     Active Substance: ATORVASTATIN CALCIUM
     Dates: start: 20210609, end: 20210620
  21. GRANULOCYTE STIMULATING FACTOR INJECTION (UNK INGREDIENTS) [Concomitant]
     Dates: start: 20210705, end: 20210705
  22. INTERLEUKIN NOS [Concomitant]
     Active Substance: INTERLEUKIN NOS
     Dates: start: 20210706, end: 20210711
  23. DEXTROSE [Concomitant]
     Active Substance: DEXTROSE
     Dates: start: 20210616, end: 20210616
  24. LEUCOGEN [Concomitant]
     Active Substance: LEUCOGEN
     Dates: start: 20210624, end: 20210701
  25. COMPOUND GLYCYRRHIZA [Concomitant]
     Route: 048
     Dates: start: 20210723
  26. TRAMADOL HYDROCHLORIDE [Concomitant]
     Active Substance: TRAMADOL HYDROCHLORIDE
     Dates: start: 20210902
  27. CELECOXIB [Concomitant]
     Active Substance: CELECOXIB
     Dates: start: 20210902

REACTIONS (4)
  - Pulmonary embolism [Fatal]
  - Troponin T increased [Not Recovered/Not Resolved]
  - Thrombocytopenia [Recovered/Resolved]
  - Pneumonia [Fatal]

NARRATIVE: CASE EVENT DATE: 20210609
